FAERS Safety Report 6940061-9 (Version None)
Quarter: 2010Q3

REPORT INFORMATION
  Report Type: 
  Country: None (occurrence: None)
  Receive Date: 20100825
  Receipt Date: 20100813
  Transmission Date: 20110219
  Serious: Yes (Death)
  Sender: FDA-Public Use
  Company Number: KR-PFIZER INC-2008085486

PATIENT
  Age: 67 Year
  Sex: Male
  Weight: 60 kg

DRUGS (9)
  1. ERLOTINIB HYDROCHLORIDE [Suspect]
     Indication: NON-SMALL CELL LUNG CANCER
     Dosage: 150 MG, 1X/DAY
     Route: 048
     Dates: start: 20080819
  2. SUNITINIB MALATE [Suspect]
     Indication: NON-SMALL CELL LUNG CANCER
     Dosage: 37.5 MG, 1X/DAY
     Route: 048
     Dates: start: 20080819
  3. HYDROCORTISONE [Concomitant]
     Indication: RASH
     Route: 061
     Dates: start: 20080918
  4. TRANEXAMIC ACID [Concomitant]
     Indication: HAEMOPTYSIS
     Route: 048
     Dates: start: 20080918
  5. CIPROFLOXACIN [Concomitant]
     Indication: RASH
     Route: 048
     Dates: start: 20080918
  6. BROMHEXINE HYDROCHLORIDE [Concomitant]
     Indication: PRODUCTIVE COUGH
     Route: 048
     Dates: start: 20080918
  7. MEGESTROL ACETATE [Concomitant]
     Indication: WEIGHT DECREASED
     Route: 048
     Dates: start: 20080918
  8. OXYCODONE HCL [Concomitant]
     Indication: PAIN
     Route: 048
     Dates: start: 20080918
  9. MAGNESIUM OXIDE [Concomitant]
     Indication: CONSTIPATION
     Route: 048
     Dates: start: 20080918

REACTIONS (1)
  - DEATH [None]
